FAERS Safety Report 22158511 (Version 5)
Quarter: 2023Q4

REPORT INFORMATION
  Report Type: Report from Study
  Country: US (occurrence: US)
  Receive Date: 20230331
  Receipt Date: 20231116
  Transmission Date: 20240109
  Serious: Yes (Hospitalization)
  Sender: FDA-Public Use
  Company Number: US-KADMON-US-KAD-23-00006

PATIENT
  Age: 65 Year
  Sex: Male
  Weight: 146.1 kg

DRUGS (6)
  1. KD-033 [Suspect]
     Active Substance: KD-033
     Indication: Malignant melanoma
     Dosage: 200 UG/KG, QW
     Route: 042
     Dates: start: 20230320
  2. DILTIAZEM [Concomitant]
     Active Substance: DILTIAZEM
     Indication: Hypertension
     Dosage: 4 DF, BID
     Route: 048
     Dates: start: 20230315
  3. DILTIAZEM [Concomitant]
     Active Substance: DILTIAZEM
     Dosage: 4 DOSAGE FORM, BID
     Route: 048
     Dates: start: 20230315
  4. APIXABAN [Concomitant]
     Active Substance: APIXABAN
     Indication: Embolism
     Dosage: 5 MG, BID
     Route: 048
     Dates: start: 202212
  5. HYDROCHLOROTHIAZIDE [Concomitant]
     Active Substance: HYDROCHLOROTHIAZIDE
     Indication: Hypertension
     Dosage: 25 MG, QD
     Route: 048
  6. VALSARTAN [Concomitant]
     Active Substance: VALSARTAN
     Indication: Hypertension
     Dosage: 320 MG, QD
     Route: 048

REACTIONS (1)
  - Cytokine release syndrome [Recovered/Resolved]

NARRATIVE: CASE EVENT DATE: 20230321
